FAERS Safety Report 10554653 (Version 1)
Quarter: 2014Q4

REPORT INFORMATION
  Report Type: Spontaneous
  Country: CO (occurrence: CO)
  Receive Date: 20141030
  Receipt Date: 20141030
  Transmission Date: 20150529
  Serious: Yes (Death, Hospitalization)
  Sender: FDA-Public Use
  Company Number: CO-BAXTER-2014BAX063424

PATIENT
  Age: 64 Year
  Sex: Male

DRUGS (28)
  1. ERYTHROPOIETIN [Concomitant]
     Active Substance: ERYTHROPOIETIN
     Indication: PRODUCT USED FOR UNKNOWN INDICATION
     Route: 065
     Dates: end: 20141012
  2. FOLIC ACID. [Concomitant]
     Active Substance: FOLIC ACID
     Dates: end: 20141012
  3. ASPIRIN. [Concomitant]
     Active Substance: ASPIRIN
     Dates: end: 20141012
  4. FOLIC ACID. [Concomitant]
     Active Substance: FOLIC ACID
     Dates: end: 20141012
  5. LEVOTHYROXINE [Concomitant]
     Active Substance: LEVOTHYROXINE
     Indication: PRODUCT USED FOR UNKNOWN INDICATION
     Route: 065
     Dates: end: 20141012
  6. CALCIUM [Concomitant]
     Active Substance: CALCIUM
     Dates: end: 20141012
  7. FOLIC ACID. [Concomitant]
     Active Substance: FOLIC ACID
     Dates: end: 20141012
  8. FUROSEMIDE. [Concomitant]
     Active Substance: FUROSEMIDE
     Indication: HYPERTENSION
     Dosage: 2 TABLETS AT 8 AM AND 2 TABLETS AT 4 PM
     Route: 065
     Dates: end: 20141012
  9. INSULIN [Concomitant]
     Active Substance: INSULIN NOS
     Indication: PRODUCT USED FOR UNKNOWN INDICATION
     Dosage: AT 8 PM
     Route: 065
     Dates: end: 20141012
  10. CALCIUM [Concomitant]
     Active Substance: CALCIUM
     Dates: end: 20141012
  11. ERYTHROPOIETIN [Concomitant]
     Active Substance: ERYTHROPOIETIN
     Dates: end: 20141012
  12. LOSARTAN [Concomitant]
     Active Substance: LOSARTAN
     Indication: HYPERTENSION
     Route: 065
     Dates: end: 20141012
  13. CLONIDINE. [Concomitant]
     Active Substance: CLONIDINE
     Indication: HYPERTENSION
     Route: 065
     Dates: end: 20141012
  14. DIANEAL PD-2 WITH DEXTROSE [Suspect]
     Active Substance: CALCIUM CHLORIDE\DEXTROSE MONOHYDRATE\MAGNESIUM CHLORIDE\SODIUM CHLORIDE\SODIUM LACTATE
     Indication: PERITONEAL DIALYSIS
     Dosage: 2 BAGS PER DAY
     Route: 033
     Dates: end: 20141012
  15. CALCIUM [Concomitant]
     Active Substance: CALCIUM
     Indication: PRODUCT USED FOR UNKNOWN INDICATION
     Route: 065
     Dates: end: 20141012
  16. ERYTHROPOIETIN [Concomitant]
     Active Substance: ERYTHROPOIETIN
     Dates: end: 20141012
  17. FOLIC ACID. [Concomitant]
     Active Substance: FOLIC ACID
     Indication: PRODUCT USED FOR UNKNOWN INDICATION
     Route: 065
     Dates: end: 20141012
  18. FOLIC ACID. [Concomitant]
     Active Substance: FOLIC ACID
     Dates: end: 20141012
  19. FOLIC ACID. [Concomitant]
     Active Substance: FOLIC ACID
     Dates: end: 20141012
  20. ERYTHROPOIETIN [Concomitant]
     Active Substance: ERYTHROPOIETIN
     Dates: end: 20141012
  21. FOLIC ACID. [Concomitant]
     Active Substance: FOLIC ACID
     Dates: end: 20141012
  22. METOPROLOL [Concomitant]
     Active Substance: METOPROLOL
     Indication: PRODUCT USED FOR UNKNOWN INDICATION
     Route: 065
     Dates: end: 20141012
  23. ASPIRIN. [Concomitant]
     Active Substance: ASPIRIN
     Indication: PRODUCT USED FOR UNKNOWN INDICATION
     Route: 065
     Dates: end: 20141012
  24. ASPIRIN. [Concomitant]
     Active Substance: ASPIRIN
     Dates: end: 20141012
  25. CALCIUM [Concomitant]
     Active Substance: CALCIUM
     Dates: end: 20141012
  26. CALCIUM [Concomitant]
     Active Substance: CALCIUM
     Dates: end: 20141012
  27. ERYTHROPOIETIN [Concomitant]
     Active Substance: ERYTHROPOIETIN
     Dates: end: 20141012
  28. ERYTHROPOIETIN [Concomitant]
     Active Substance: ERYTHROPOIETIN
     Dates: end: 20141012

REACTIONS (1)
  - Acute pulmonary oedema [Fatal]

NARRATIVE: CASE EVENT DATE: 20141011
